FAERS Safety Report 4768814-6 (Version None)
Quarter: 2005Q3

REPORT INFORMATION
  Report Type: 
  Country: None (occurrence: None)
  Receive Date: 20050914
  Receipt Date: 20050829
  Transmission Date: 20060218
  Serious: Yes (Life-Threatening)
  Sender: FDA-Public Use
  Company Number: 2005US-00678

PATIENT
  Sex: Female

DRUGS (1)
  1. OPIUM TINCTURE (OPIUM TINCTURE) SOLUTION, 10MG/ML [Suspect]
     Indication: DIARRHOEA
     Dosage: ORAL
     Route: 048
     Dates: start: 20050521, end: 20050522

REACTIONS (3)
  - ACCIDENTAL OVERDOSE [None]
  - LETHARGY [None]
  - MEDICATION ERROR [None]
